FAERS Safety Report 7215260-1 (Version None)
Quarter: 2011Q1

REPORT INFORMATION
  Report Type: 
  Country: None (occurrence: None)
  Receive Date: 20110107
  Receipt Date: 20110104
  Transmission Date: 20110831
  Serious: Yes (Death)
  Sender: FDA-Public Use
  Company Number: US-KINGPHARMUSA00001-K201100013

PATIENT
  Age: 77 Year
  Sex: Female

DRUGS (10)
  1. LISINOPRIL [Suspect]
     Indication: COMPLETED SUICIDE
     Dosage: UNK
     Route: 048
  2. LEVOXYL [Suspect]
     Indication: COMPLETED SUICIDE
     Dosage: UNK
     Route: 048
  3. DILTIAZEM [Suspect]
     Indication: COMPLETED SUICIDE
     Dosage: UNK
     Route: 048
  4. DRUG USED IN DIABETES [Suspect]
     Indication: COMPLETED SUICIDE
     Dosage: UNK
     Route: 048
  5. VENLAFAXINE [Suspect]
     Indication: COMPLETED SUICIDE
     Dosage: UNK
     Route: 048
  6. CHLORDIAZEPOXIDE [Suspect]
     Indication: COMPLETED SUICIDE
     Dosage: UNK
     Route: 048
  7. HYDROCHLOROTHIAZIDE [Suspect]
     Indication: COMPLETED SUICIDE
     Dosage: UNK
     Route: 048
  8. SIMVASTATIN [Suspect]
     Indication: COMPLETED SUICIDE
     Dosage: UNK
     Route: 048
  9. DOXAZOSIN [Suspect]
     Indication: COMPLETED SUICIDE
     Dosage: UNK
     Route: 048
  10. BENZODIAZEPINE DERIVATIVES [Suspect]
     Indication: COMPLETED SUICIDE
     Dosage: UNK
     Route: 048

REACTIONS (3)
  - COMPLETED SUICIDE [None]
  - INTENTIONAL DRUG MISUSE [None]
  - CARDIO-RESPIRATORY ARREST [None]
